FAERS Safety Report 12175548 (Version 1)
Quarter: 2016Q1

REPORT INFORMATION
  Report Type: Report from Study
  Country: TW (occurrence: TW)
  Receive Date: 20160314
  Receipt Date: 20160314
  Transmission Date: 20160526
  Serious: Yes (Death)
  Sender: FDA-Public Use
  Company Number: TW-BAXTER-2016BAX011100

PATIENT

DRUGS (1)
  1. HOLOXAN 500MG [Suspect]
     Active Substance: IFOSFAMIDE
     Indication: SMALL CELL LUNG CANCER
     Dosage: 2.4 GRAM/M2 OVER 30 MINUTES ON DAYS 1 TO 3
     Route: 041

REACTIONS (2)
  - Febrile neutropenia [Fatal]
  - Alopecia [Unknown]
